FAERS Safety Report 7660708-1 (Version None)
Quarter: 2011Q3

REPORT INFORMATION
  Report Type: 
  Country: None (occurrence: None)
  Receive Date: 20110805
  Receipt Date: 20101012
  Transmission Date: 20111222
  Serious: No
  Sender: FDA-Public Use
  Company Number: US-ABBOTT-10P-163-0677989-00

PATIENT
  Sex: Male
  Weight: 106.69 kg

DRUGS (6)
  1. PRASUGREL [Concomitant]
     Indication: MYOCARDIAL INFARCTION
     Dates: start: 20090201
  2. AMBIEN [Concomitant]
     Indication: INSOMNIA
  3. COZAAR [Concomitant]
     Indication: MYOCARDIAL INFARCTION
     Dates: start: 20090201
  4. NIASPAN [Suspect]
     Indication: MYOCARDIAL INFARCTION
     Dates: start: 20090201, end: 20101001
  5. ASPIRIN [Concomitant]
     Indication: PRODUCT USED FOR UNKNOWN INDICATION
  6. METOPROLOL TARTRATE [Concomitant]
     Indication: MYOCARDIAL INFARCTION
     Dates: start: 20090201

REACTIONS (3)
  - HYPERHIDROSIS [None]
  - NASOPHARYNGITIS [None]
  - FLUSHING [None]
